FAERS Safety Report 5135122-3 (Version None)
Quarter: 2006Q4

REPORT INFORMATION
  Report Type: 
  Country: None (occurrence: None)
  Receive Date: 20060831
  Receipt Date: 20060510
  Transmission Date: 20070319
  Serious: No
  Sender: FDA-Public Use
  Company Number: 2006-BP-05431PF

PATIENT
  Sex: Female

DRUGS (6)
  1. SPIRIVA [Suspect]
     Indication: DYSPNOEA
     Dosage: 18 MCG (18 MCG,1 IN 1 D),IH
     Route: 055
  2. HYDROCHLOROTHIAZIDE [Suspect]
     Indication: OEDEMA PERIPHERAL
     Dates: start: 20051201, end: 20060201
  3. PROCARDIA [Concomitant]
  4. SINEQUAM [Concomitant]
  5. IPRAPROPIUM BROMIDE [Concomitant]
  6. VITAMIN B6 [Concomitant]

REACTIONS (5)
  - DIZZINESS [None]
  - JOINT SWELLING [None]
  - OEDEMA PERIPHERAL [None]
  - PRURITUS [None]
  - STOMACH DISCOMFORT [None]
